FAERS Safety Report 24838184 (Version 1)
Quarter: 2025Q1

REPORT INFORMATION
  Report Type: Spontaneous
  Country: US (occurrence: None)
  Receive Date: 20250113
  Receipt Date: 20250113
  Transmission Date: 20250409
  Serious: Yes (Other)
  Sender: FDA-CTU
  Company Number: None

PATIENT
  Age: 50 Year
  Sex: Male
  Weight: 81 kg

DRUGS (1)
  1. AZSTARYS [Suspect]
     Active Substance: DEXMETHYLPHENIDATE HYDROCHLORIDE\SERDEXMETHYLPHENIDATE CHLORIDE
     Indication: Attention deficit hyperactivity disorder
     Dosage: FREQUENCY : DAILY;?
     Route: 048
     Dates: start: 20241214, end: 20241220

REACTIONS (6)
  - Therapeutic response decreased [None]
  - Therapy change [None]
  - Psychotic symptom [None]
  - Hallucination, visual [None]
  - Insomnia [None]
  - Abnormal behaviour [None]

NARRATIVE: CASE EVENT DATE: 20241219
